FAERS Safety Report 17316360 (Version 3)
Quarter: 2020Q3

REPORT INFORMATION
  Report Type: Spontaneous
  Country: JP (occurrence: JP)
  Receive Date: 20200124
  Receipt Date: 20200903
  Transmission Date: 20201102
  Serious: Yes (Other)
  Sender: FDA-Public Use
  Company Number: JP-ROCHE-2530430

PATIENT
  Age: 7 Decade
  Sex: Male
  Weight: 59 kg

DRUGS (6)
  1. AMLODIPINE [Concomitant]
     Active Substance: AMLODIPINE BESYLATE
     Route: 065
     Dates: start: 20190814
  2. HEMLIBRA [Suspect]
     Active Substance: EMICIZUMAB-KXWH
     Route: 058
     Dates: start: 20191227
  3. CANDESARTAN. [Concomitant]
     Active Substance: CANDESARTAN
     Route: 065
     Dates: start: 20160518
  4. ATORVASTATIN [Concomitant]
     Active Substance: ATORVASTATIN
     Route: 065
     Dates: start: 20150812
  5. HEMLIBRA [Suspect]
     Active Substance: EMICIZUMAB-KXWH
     Route: 058
     Dates: start: 20191018, end: 20191213
  6. HEMLIBRA [Suspect]
     Active Substance: EMICIZUMAB-KXWH
     Indication: HAEMOPHILIA A WITHOUT INHIBITORS
     Route: 058
     Dates: start: 20190920, end: 20191011

REACTIONS (2)
  - Haemarthrosis [Recovered/Resolved]
  - Therapeutic response decreased [Unknown]

NARRATIVE: CASE EVENT DATE: 20191215
